FAERS Safety Report 21932509 (Version 1)
Quarter: 2023Q1

REPORT INFORMATION
  Report Type: Spontaneous
  Country: CN (occurrence: CN)
  Receive Date: 20230131
  Receipt Date: 20230131
  Transmission Date: 20230418
  Serious: Yes (Other)
  Sender: FDA-Public Use
  Company Number: CN-AMGEN-CHNSP2023013137

PATIENT
  Age: 32 Year
  Sex: Female

DRUGS (3)
  1. XGEVA [Suspect]
     Active Substance: DENOSUMAB
     Indication: Breast cancer stage IV
     Dosage: UNK
     Route: 065
     Dates: start: 2022
  2. FILGRASTIM [Suspect]
     Active Substance: FILGRASTIM
     Indication: Neutropenia
     Dosage: 300 MICROGRAM
     Route: 065
     Dates: start: 2022
  3. CALCITRIOL [Concomitant]
     Active Substance: CALCITRIOL
     Indication: Mineral supplementation
     Dosage: UNK
     Route: 048
     Dates: start: 2022

REACTIONS (1)
  - Neutropenia [Unknown]

NARRATIVE: CASE EVENT DATE: 20220101
